FAERS Safety Report 4645942-7 (Version None)
Quarter: 2005Q2

REPORT INFORMATION
  Report Type: 
  Country: None (occurrence: None)
  Receive Date: 20050425
  Receipt Date: 20050408
  Transmission Date: 20051028
  Serious: Yes (Hospitalization, Other)
  Sender: FDA-Public Use
  Company Number: CH-2005-004628

PATIENT
  Age: 29 Year
  Sex: Female
  Weight: 60 kg

DRUGS (1)
  1. MIRENA [Suspect]
     Indication: CONTRACEPTION
     Dosage: 20 UG/DAY, CONT, INTRA-UTERINE
     Route: 015
     Dates: start: 20020610, end: 20050324

REACTIONS (4)
  - ABORTION INDUCED [None]
  - COMPLICATION OF PREGNANCY [None]
  - PLACENTAL DISORDER [None]
  - PREGNANCY WITH CONTRACEPTIVE DEVICE [None]
